FAERS Safety Report 6447576-0 (Version None)
Quarter: 2009Q4

REPORT INFORMATION
  Report Type: 
  Country: None (occurrence: None)
  Receive Date: 20091119
  Receipt Date: 20090104
  Transmission Date: 20100525
  Serious: Yes (Hospitalization)
  Sender: FDA-Public Use
  Company Number: US-AMGEN-KDL326726

PATIENT
  Age: 14 Year
  Sex: Male
  Weight: 100 kg

DRUGS (2)
  1. ENBREL [Suspect]
     Indication: PSORIASIS
     Dates: start: 20081224, end: 20081225
  2. UNSPECIFIED TOPICAL PRODUCT [Concomitant]
     Route: 061

REACTIONS (1)
  - VIRAL INFECTION [None]
